FAERS Safety Report 25385026 (Version 1)
Quarter: 2025Q2

REPORT INFORMATION
  Report Type: Spontaneous
  Country: US (occurrence: None)
  Receive Date: 20250530
  Receipt Date: 20250530
  Transmission Date: 20250716
  Serious: Yes (Death)
  Sender: FDA-CTU
  Company Number: None

PATIENT
  Age: 67 Year
  Sex: Male

DRUGS (17)
  1. REPATHA [Suspect]
     Active Substance: EVOLOCUMAB
     Indication: Hypercholesterolaemia
  2. LOPRESSOR [Concomitant]
     Active Substance: METOPROLOL TARTRATE
  3. METOLAZONE [Concomitant]
     Active Substance: METOLAZONE
  4. OMEPRAZOLE [Concomitant]
     Active Substance: OMEPRAZOLE
  5. POTASSIUM CHLORIDE [Concomitant]
     Active Substance: POTASSIUM CHLORIDE
  6. TRADJENTA [Concomitant]
     Active Substance: LINAGLIPTIN
  7. XANAX [Concomitant]
     Indication: Hypercholesterolaemia
     Dosage: FREQUENCY : EVERY OTHER WEEK;?
     Route: 058
     Dates: start: 20230116
  8. ALBUTEROL [Concomitant]
     Active Substance: ALBUTEROL
  9. AMLODIPINE [Concomitant]
     Active Substance: AMLODIPINE BESYLATE
  10. ATORVASTATIN [Concomitant]
     Active Substance: ATORVASTATIN
  11. ELIQUIS [Concomitant]
     Active Substance: APIXABAN
  12. FUROSEMIDE [Concomitant]
     Active Substance: FUROSEMIDE
  13. GABAPENTI N [Concomitant]
  14. GEMFIBROZIL [Concomitant]
     Active Substance: GEMFIBROZIL
  15. GLIPIZIDE [Concomitant]
     Active Substance: GLIPIZIDE
  16. LINZESS [Concomitant]
     Active Substance: LINACLOTIDE
  17. LINZESS [Concomitant]
     Active Substance: LINACLOTIDE

REACTIONS (4)
  - Cardiac failure congestive [None]
  - Chronic obstructive pulmonary disease [None]
  - Diabetes mellitus [None]
  - Disease complication [None]

NARRATIVE: CASE EVENT DATE: 20250518
